FAERS Safety Report 8348730-3 (Version None)
Quarter: 2012Q2

REPORT INFORMATION
  Report Type: 
  Country: None (occurrence: None)
  Receive Date: 20120508
  Receipt Date: 20110815
  Transmission Date: 20120825
  Serious: Yes (Other)
  Sender: FDA-Public Use
  Company Number: 2012POI057500060

PATIENT
  Sex: Female

DRUGS (5)
  1. DARVON [Suspect]
  2. XANAX [Suspect]
  3. CYMBALTA [Suspect]
  4. ASPIRIN [Suspect]
  5. PLAVIX [Suspect]

REACTIONS (12)
  - HIATUS HERNIA [None]
  - FIBROMYALGIA [None]
  - AMNESIA [None]
  - CEREBRAL CYST [None]
  - THROMBOPHLEBITIS [None]
  - ROAD TRAFFIC ACCIDENT [None]
  - MYOCARDIAL INFARCTION [None]
  - OVARIAN CANCER [None]
  - BIOPSY BREAST [None]
  - RADICULOPATHY [None]
  - BRAIN NEOPLASM BENIGN [None]
  - BRAIN OEDEMA [None]
